FAERS Safety Report 4909321-7 (Version None)
Quarter: 2006Q1

REPORT INFORMATION
  Report Type: 
  Country: None (occurrence: None)
  Receive Date: 20060210
  Receipt Date: 20060210
  Transmission Date: 20060701
  Serious: Yes (Life-Threatening, Other)
  Sender: FDA-Public Use
  Company Number: None

PATIENT
  Age: 26 Year
  Sex: Female
  Weight: 56.6996 kg

DRUGS (2)
  1. YASMIN [Suspect]
     Indication: CONTRACEPTION
     Dosage: 1 PER DAY  PO
     Route: 048
     Dates: start: 20050801, end: 20050930
  2. ESTROSTEP [Suspect]
     Indication: CONTRACEPTION
     Dosage: 1 PER DAY PO
     Route: 048
     Dates: start: 20040724, end: 20050722

REACTIONS (27)
  - ABDOMINAL PAIN [None]
  - ALOPECIA [None]
  - ANXIETY [None]
  - ASTHENIA [None]
  - CHEST PAIN [None]
  - DIZZINESS [None]
  - DRY EYE [None]
  - EYE PAIN [None]
  - FEELING HOT [None]
  - GINGIVAL DISORDER [None]
  - HAEMORRHAGE [None]
  - HEADACHE [None]
  - HEART RATE INCREASED [None]
  - HYPERTENSION [None]
  - MENSTRUATION IRREGULAR [None]
  - MYDRIASIS [None]
  - PALPITATIONS [None]
  - PANIC ATTACK [None]
  - PHARMACEUTICAL PRODUCT COMPLAINT [None]
  - PRURITUS [None]
  - THIRST [None]
  - TINNITUS [None]
  - UNEMPLOYMENT [None]
  - VISION BLURRED [None]
  - VISUAL ACUITY REDUCED [None]
  - VISUAL DISTURBANCE [None]
  - WEIGHT DECREASED [None]
